FAERS Safety Report 11546161 (Version 1)
Quarter: 2015Q3

REPORT INFORMATION
  Report Type: Spontaneous
  Country: US (occurrence: US)
  Receive Date: 20150924
  Receipt Date: 20150924
  Transmission Date: 20151125
  Serious: Yes (Disabling)
  Sender: FDA-Public Use
  Company Number: US-AKRIMAX-TIR-03491

PATIENT
  Weight: 76.27 kg

DRUGS (2)
  1. TIROSINT [Suspect]
     Active Substance: LEVOTHYROXINE SODIUM
     Indication: HYPOTHYROIDISM
     Dosage: ONCE DAILY
     Route: 048
     Dates: start: 201401, end: 201404
  2. CYTOMEL [Concomitant]
     Active Substance: LIOTHYRONINE SODIUM
     Indication: PRODUCT USED FOR UNKNOWN INDICATION
     Dates: start: 2011

REACTIONS (4)
  - Dyspnoea [Unknown]
  - Clumsiness [Unknown]
  - Disorientation [Unknown]
  - Dizziness [Unknown]

NARRATIVE: CASE EVENT DATE: 2014
